FAERS Safety Report 19011040 (Version 1)
Quarter: 2021Q1

REPORT INFORMATION
  Report Type: Spontaneous
  Country: FR (occurrence: FR)
  Receive Date: 20210316
  Receipt Date: 20210316
  Transmission Date: 20210420
  Serious: Yes (Other)
  Sender: FDA-Public Use
  Company Number: FR-TEVA-2021-FR-1889324

PATIENT
  Age: 63 Year
  Sex: Male
  Weight: 80.5 kg

DRUGS (6)
  1. ALPRAZOLAM. [Suspect]
     Active Substance: ALPRAZOLAM
     Indication: ANXIETY
     Dosage: IF NECESSARY , 3 DF
     Route: 048
     Dates: start: 20210105, end: 20210205
  2. ATORVASTATINE [Concomitant]
     Active Substance: ATORVASTATIN
  3. COVERAM [Concomitant]
     Active Substance: AMLODIPINE\PERINDOPRIL
  4. DOLIPRANE [Concomitant]
     Active Substance: ACETAMINOPHEN
  5. KARDEGIC [Suspect]
     Active Substance: ASPIRIN DL-LYSINE
     Indication: PRODUCT USED FOR UNKNOWN INDICATION
     Dosage: POWDER FOR ORAL SOLUTION IN SACHET , 1 DF
     Route: 048
     Dates: end: 20210204
  6. SEROPLEX 10 MG, COMPRIME PELLICULE SECABLE [Concomitant]
     Active Substance: ESCITALOPRAM OXALATE

REACTIONS (1)
  - Rash maculo-papular [Recovered/Resolved]

NARRATIVE: CASE EVENT DATE: 20210130
